FAERS Safety Report 6136475-X (Version None)
Quarter: 2009Q1

REPORT INFORMATION
  Report Type: 
  Country: None (occurrence: None)
  Receive Date: 20090217
  Receipt Date: 20080424
  Transmission Date: 20090719
  Serious: No
  Sender: FDA-Public Use
  Company Number: AEUSA200800104

PATIENT
  Sex: Female

DRUGS (2)
  1. PROLASTIN [Suspect]
     Indication: ALPHA-1 ANTI-TRYPSIN DEFICIENCY
     Dosage: 7000 MG; IV
     Route: 042
     Dates: start: 19880101, end: 20080428
  2. BENADRYL [Concomitant]

REACTIONS (3)
  - COUGH [None]
  - SWOLLEN TONGUE [None]
  - TONGUE DISORDER [None]
